FAERS Safety Report 24888269 (Version 1)
Quarter: 2025Q1

REPORT INFORMATION
  Report Type: Spontaneous
  Country: US (occurrence: US)
  Receive Date: 20250127
  Receipt Date: 20250127
  Transmission Date: 20250408
  Serious: Yes (Other)
  Sender: TEVA
  Company Number: US-TEVA-VS-3289411

PATIENT
  Age: 39 Year
  Sex: Female

DRUGS (3)
  1. BUDESONIDE [Suspect]
     Active Substance: BUDESONIDE
     Indication: Product used for unknown indication
     Route: 065
  2. DUPIXENT [Suspect]
     Active Substance: DUPILUMAB
     Indication: Asthma
     Route: 058
     Dates: start: 202304
  3. ALBUTEROL [Suspect]
     Active Substance: ALBUTEROL
     Indication: Product used for unknown indication
     Route: 065

REACTIONS (2)
  - Asthma [Unknown]
  - Drug hypersensitivity [Unknown]
